FAERS Safety Report 9159904 (Version 1)
Quarter: 2013Q1

REPORT INFORMATION
  Report Type: Spontaneous
  Country: US (occurrence: US)
  Receive Date: 20130313
  Receipt Date: 20130313
  Transmission Date: 20140127
  Serious: Yes (Hospitalization)
  Sender: FDA-Public Use
  Company Number: PHEH2013US005614

PATIENT
  Age: 17 Year
  Sex: Female
  Weight: 52.15 kg

DRUGS (8)
  1. TOBI [Suspect]
     Indication: INFECTIVE PULMONARY EXACERBATION OF CYSTIC FIBROSIS
     Dosage: 300 MG, BID
     Dates: end: 201212
  2. PULMOZYME [Concomitant]
  3. ADVAIR [Concomitant]
  4. PREVACID [Concomitant]
  5. SINGULAIR [Concomitant]
  6. ZANTAC [Concomitant]
  7. AZITHROMYCIN [Concomitant]
  8. MULTI-VIT [Concomitant]

REACTIONS (4)
  - Pneumonia [Recovering/Resolving]
  - Rhinorrhoea [Recovering/Resolving]
  - Cough [Recovering/Resolving]
  - Weight decreased [Recovering/Resolving]
